FAERS Safety Report 23964259 (Version 2)
Quarter: 2024Q3

REPORT INFORMATION
  Report Type: Report from Study
  Country: US (occurrence: US)
  Receive Date: 20240611
  Receipt Date: 20240816
  Transmission Date: 20241017
  Serious: Yes (Other)
  Sender: ABBVIE
  Company Number: US-ABBVIE-5792483

PATIENT
  Sex: Female

DRUGS (1)
  1. RINVOQ [Suspect]
     Active Substance: UPADACITINIB
     Indication: Rheumatoid arthritis
     Route: 048
     Dates: start: 20240522

REACTIONS (3)
  - Osteoarthritis [Unknown]
  - Nodule [Not Recovered/Not Resolved]
  - Limb asymmetry [Unknown]

NARRATIVE: CASE EVENT DATE: 20240101
